FAERS Safety Report 4486904-2 (Version None)
Quarter: 2004Q4

REPORT INFORMATION
  Report Type: 
  Country: None (occurrence: None)
  Receive Date: 20041022
  Receipt Date: 20040615
  Transmission Date: 20050328
  Serious: No
  Sender: FDA-Public Use
  Company Number: DE-JNJFOC-20031002159

PATIENT
  Age: 34 Year
  Sex: Female
  Weight: 68 kg

DRUGS (7)
  1. VERMOX [Suspect]
     Dates: start: 20030901
  2. VERMOX [Suspect]
     Dates: start: 20031001
  3. FOLIC ACID [Concomitant]
  4. MG (MAGNESIUM) [Concomitant]
  5. IRON (IRON) [Concomitant]
  6. MAGALDRATE (MAGALDRATE) [Concomitant]
  7. OXYTOCIN 10 USP UNITS IN DEXTROSE 5% [Concomitant]

REACTIONS (5)
  - BLIGHTED OVUM [None]
  - DRUG EXPOSURE DURING PREGNANCY [None]
  - MUSCLE CRAMP [None]
  - PREGNANCY [None]
  - REFLUX OESOPHAGITIS [None]
